FAERS Safety Report 16851082 (Version 1)
Quarter: 2019Q3

REPORT INFORMATION
  Report Type: Spontaneous
  Country: US (occurrence: US)
  Receive Date: 20190925
  Receipt Date: 20190925
  Transmission Date: 20191005
  Serious: No
  Sender: FDA-Public Use
  Company Number: US-PFIZER INC-2019399710

PATIENT
  Age: 9 Year
  Sex: Female

DRUGS (1)
  1. GENOTROPIN [Suspect]
     Active Substance: SOMATROPIN
     Dosage: 1.2 MG, UNK (6 DAYS A WEEK)

REACTIONS (4)
  - Product dose omission [Unknown]
  - Headache [Unknown]
  - Tendon disorder [Recovering/Resolving]
  - Musculoskeletal disorder [Recovering/Resolving]
